FAERS Safety Report 19330678 (Version 1)
Quarter: 2021Q2

REPORT INFORMATION
  Report Type: Spontaneous
  Country: IN (occurrence: IN)
  Receive Date: 20210528
  Receipt Date: 20210528
  Transmission Date: 20210717
  Serious: Yes (Death, Other)
  Sender: FDA-Public Use
  Company Number: IN-FRESENIUS KABI-FK202105351

PATIENT
  Age: 55 Year
  Sex: Male

DRUGS (5)
  1. DEXAMETHASONE INJECTION (MANUFACTURER UNKNOWN) [Suspect]
     Active Substance: DEXAMETHASONE
     Route: 065
     Dates: start: 201810
  2. MELPHALAN (MANUFACTURER UNKNOWN) [Suspect]
     Active Substance: MELPHALAN
     Indication: PLASMA CELL MYELOMA
     Route: 065
     Dates: start: 2019
  3. BORTEZOMIB (MANUFACTURER UNKNOWN) [Suspect]
     Active Substance: BORTEZOMIB
     Indication: PLASMA CELL MYELOMA
     Dosage: 6 CYCLES
     Route: 065
     Dates: start: 2018
  4. DEXAMETHASONE INJECTION (MANUFACTURER UNKNOWN) [Suspect]
     Active Substance: DEXAMETHASONE
     Indication: PLASMA CELL MYELOMA
     Dosage: 6 CYCLES
     Route: 065
     Dates: start: 2018
  5. BORTEZOMIB (MANUFACTURER UNKNOWN) [Suspect]
     Active Substance: BORTEZOMIB
     Route: 065
     Dates: start: 201810

REACTIONS (10)
  - Febrile neutropenia [Fatal]
  - Atrial fibrillation [Unknown]
  - Vascular device infection [Recovered/Resolved]
  - Acute respiratory distress syndrome [Fatal]
  - Klebsiella infection [Recovered/Resolved]
  - Shock [Fatal]
  - Mucosal inflammation [Unknown]
  - Sepsis [Unknown]
  - Metapneumovirus infection [Fatal]
  - Acute kidney injury [Fatal]
